FAERS Safety Report 26152801 (Version 2)
Quarter: 2025Q4

REPORT INFORMATION
  Report Type: Report from Study
  Country: EU (occurrence: EU)
  Receive Date: 20251214
  Receipt Date: 20251224
  Transmission Date: 20260117
  Serious: Yes (Death, Life-Threatening)
  Sender: ABBVIE
  Company Number: EU-ABBVIE-6584580

PATIENT
  Age: 78 Year
  Sex: Male

DRUGS (13)
  1. VENETOCLAX [Suspect]
     Active Substance: VENETOCLAX
     Indication: Acute myeloid leukaemia
     Dosage: CYCLE 1
     Route: 048
     Dates: start: 20241205, end: 20250102
  2. VENETOCLAX [Suspect]
     Active Substance: VENETOCLAX
     Indication: Acute myeloid leukaemia
     Dosage: CYCLE 2
     Route: 048
     Dates: start: 20250120, end: 20250203
  3. VENETOCLAX [Suspect]
     Active Substance: VENETOCLAX
     Indication: Acute myeloid leukaemia
     Dosage: CYCLE 2
     Route: 048
     Dates: start: 20250204, end: 20250209
  4. VENETOCLAX [Suspect]
     Active Substance: VENETOCLAX
     Indication: Acute myeloid leukaemia
     Dosage: CYCLE 3
     Route: 048
     Dates: start: 20250313, end: 20250409
  5. VENETOCLAX [Suspect]
     Active Substance: VENETOCLAX
     Indication: Acute myeloid leukaemia
     Dosage: CYCLE 4
     Route: 048
     Dates: start: 20250428, end: 20250518
  6. VENETOCLAX [Suspect]
     Active Substance: VENETOCLAX
     Indication: Acute myeloid leukaemia
     Dosage: CYCLE 5
     Route: 048
     Dates: start: 20250605, end: 20250625
  7. VENETOCLAX [Suspect]
     Active Substance: VENETOCLAX
     Indication: Acute myeloid leukaemia
     Dosage: CYCLE 6
     Route: 048
     Dates: start: 20250724, end: 20250807
  8. AZACITIDINE [Suspect]
     Active Substance: AZACITIDINE
     Indication: Acute myeloid leukaemia
     Dosage: CYCLE 1 FORM STRENGTH 75 MG/M2 BSA
     Route: 065
     Dates: start: 20241205, end: 20241212
  9. AZACITIDINE [Suspect]
     Active Substance: AZACITIDINE
     Indication: Acute myeloid leukaemia
     Dosage: CYCLE 2 FORM STRENGTH 75 MG/M2 BSA
     Route: 065
     Dates: start: 20250120, end: 20250126
  10. AZACITIDINE [Suspect]
     Active Substance: AZACITIDINE
     Indication: Acute myeloid leukaemia
     Dosage: CYCLE 3 FORM STRENGTH 128 MG/M2 BSA
     Route: 065
     Dates: start: 20250313, end: 20250320
  11. AZACITIDINE [Suspect]
     Active Substance: AZACITIDINE
     Indication: Acute myeloid leukaemia
     Dosage: CYCLE 4 FORM STRENGTH 128 MG/M2 BSA
     Route: 065
     Dates: start: 20250417, end: 20250424
  12. AZACITIDINE [Suspect]
     Active Substance: AZACITIDINE
     Indication: Acute myeloid leukaemia
     Dosage: CYCLE 5 FORM STRENGTH 128 MG/M2 BSA
     Route: 065
     Dates: start: 20250605, end: 20250611
  13. AZACITIDINE [Suspect]
     Active Substance: AZACITIDINE
     Indication: Acute myeloid leukaemia
     Dosage: CYCLE 6 FORM STRENGTH 128 MG/M2 BSA
     Route: 065
     Dates: start: 20250724, end: 20250801

REACTIONS (1)
  - Disease progression [Fatal]

NARRATIVE: CASE EVENT DATE: 20250913
